FAERS Safety Report 25318428 (Version 1)
Quarter: 2025Q2

REPORT INFORMATION
  Report Type: Spontaneous
  Country: US (occurrence: US)
  Receive Date: 20250515
  Receipt Date: 20250515
  Transmission Date: 20250716
  Serious: No
  Sender: TAKEDA
  Company Number: US-TAKEDA-2025TUS045908

PATIENT
  Sex: Female

DRUGS (2)
  1. ALUNBRIG [Suspect]
     Active Substance: BRIGATINIB
     Indication: Product used for unknown indication
     Dosage: 180 MILLIGRAM, QD
     Dates: start: 202501
  2. ALUNBRIG [Suspect]
     Active Substance: BRIGATINIB

REACTIONS (5)
  - Contusion [Unknown]
  - Hepatic enzyme increased [Unknown]
  - Acne [Unknown]
  - Pain in extremity [Unknown]
  - Arthralgia [Unknown]
